FAERS Safety Report 19097845 (Version 1)
Quarter: 2021Q2

REPORT INFORMATION
  Report Type: Spontaneous
  Country: US (occurrence: US)
  Receive Date: 20210406
  Receipt Date: 20210406
  Transmission Date: 20210717
  Serious: Yes (Hospitalization)
  Sender: FDA-Public Use
  Company Number: None

PATIENT
  Age: 46 Year
  Sex: Male
  Weight: 100.35 kg

DRUGS (1)
  1. BAMLANIVIMAB. [Suspect]
     Active Substance: BAMLANIVIMAB
     Indication: COVID-19
     Dosage: ?          OTHER FREQUENCY:ONCE;?
     Route: 041

REACTIONS (7)
  - Nausea [None]
  - Vomiting [None]
  - Tremor [None]
  - Hepatitis [None]
  - Diarrhoea [None]
  - COVID-19 pneumonia [None]
  - Dehydration [None]

NARRATIVE: CASE EVENT DATE: 20210402
